FAERS Safety Report 5889001-4 (Version None)
Quarter: 2008Q3

REPORT INFORMATION
  Report Type: 
  Country: None (occurrence: None)
  Receive Date: 20080919
  Receipt Date: 20080728
  Transmission Date: 20090109
  Serious: No
  Sender: FDA-Public Use
  Company Number: PR-BAYER-200829798NA

PATIENT
  Sex: Female

DRUGS (1)
  1. AVELOX [Suspect]
     Indication: ACUTE SINUSITIS
     Dosage: TOTAL DAILY DOSE: 400 MG  UNIT DOSE: 400 MG
     Dates: start: 20080601

REACTIONS (6)
  - ANXIETY [None]
  - ERYTHEMA [None]
  - HYPERPYREXIA [None]
  - HYPERTENSION [None]
  - TYPE I HYPERSENSITIVITY [None]
  - VASODILATATION [None]
